FAERS Safety Report 6754337-1 (Version None)
Quarter: 2010Q2

REPORT INFORMATION
  Report Type: 
  Country: None (occurrence: None)
  Receive Date: 20100603
  Receipt Date: 20100525
  Transmission Date: 20101027
  Serious: Yes (Hospitalization)
  Sender: FDA-Public Use
  Company Number: Z0004377A

PATIENT
  Sex: Male
  Weight: 80 kg

DRUGS (5)
  1. OFATUMUMAB [Suspect]
     Indication: CHRONIC LYMPHOCYTIC LEUKAEMIA
     Route: 042
     Dates: start: 20100322
  2. FLUDARABINE [Suspect]
     Indication: CHRONIC LYMPHOCYTIC LEUKAEMIA
     Route: 042
     Dates: start: 20100322
  3. CYCLOPHOSPHAMIDE [Suspect]
     Indication: CHRONIC LYMPHOCYTIC LEUKAEMIA
     Route: 042
     Dates: start: 20100322
  4. AVELOX [Concomitant]
     Dosage: 400MG PER DAY
     Route: 048
     Dates: start: 20100524, end: 20100524
  5. PIPERACILLIN AND TAZOBACTAM [Concomitant]
     Dosage: 4.5G PER DAY
     Route: 042
     Dates: start: 20100525

REACTIONS (1)
  - PLEURISY [None]
